FAERS Safety Report 24908814 (Version 1)
Quarter: 2025Q1

REPORT INFORMATION
  Report Type: Spontaneous
  Country: US (occurrence: US)
  Receive Date: 20250131
  Receipt Date: 20250131
  Transmission Date: 20250408
  Serious: Yes (Death, Hospitalization, Other)
  Sender: GRAVITI PHARMACEUTICALS PRIVATE LIMITED
  Company Number: US-GRAVITIPHARMA-GRA-2501-US-LIT-0026

PATIENT
  Age: 19 Year
  Sex: Female

DRUGS (2)
  1. BUPROPION HYDROCHLORIDE [Suspect]
     Active Substance: BUPROPION HYDROCHLORIDE
     Indication: Product used for unknown indication
     Route: 065
  2. OXCARBAZEPINE [Suspect]
     Active Substance: OXCARBAZEPINE
     Indication: Product used for unknown indication
     Route: 065

REACTIONS (14)
  - Cardiopulmonary failure [Fatal]
  - Cardiac arrest [Unknown]
  - Tachycardia [Unknown]
  - Hypertension [Unknown]
  - Hypotension [Unknown]
  - Electrocardiogram QRS complex prolonged [Unknown]
  - Ventricular hypokinesia [Unknown]
  - Electrocardiogram QT prolonged [Unknown]
  - Ventricular fibrillation [Unknown]
  - Mydriasis [Unknown]
  - Hyperhidrosis [Unknown]
  - Metabolic acidosis [Unknown]
  - Seizure [Unknown]
  - Intentional overdose [Unknown]
